FAERS Safety Report 9077052 (Version 1)
Quarter: 2013Q1

REPORT INFORMATION
  Report Type: Report from Study
  Country: US (occurrence: US)
  Receive Date: 20130129
  Receipt Date: 20130129
  Transmission Date: 20140127
  Serious: No
  Sender: FDA-Public Use
  Company Number: US-ABBOTT-12P-163-0949343-00

PATIENT
  Age: 63 Year
  Sex: Male

DRUGS (7)
  1. HUMIRA 40 MG/0.8 ML PEN [Suspect]
     Indication: PSORIASIS
     Dates: start: 20120301
  2. BYSTOLIC [Concomitant]
     Indication: HYPERTENSION
     Dosage: 20MG DAILY
  3. CRESTOR [Concomitant]
     Indication: BLOOD CHOLESTEROL INCREASED
     Dosage: 40MG DAILY
  4. ULORIC [Concomitant]
     Indication: GOUT
     Dosage: 40MG DAILY
  5. ULORIC [Concomitant]
     Indication: BLOOD URIC ACID INCREASED
  6. ASPIRIN [Concomitant]
     Indication: MYOCARDIAL INFARCTION
     Dosage: LOW DOSE
  7. CLOBETASOL [Concomitant]
     Indication: PSORIASIS

REACTIONS (1)
  - Injection site pain [Recovered/Resolved]
